FAERS Safety Report 9254846 (Version 1)
Quarter: 2013Q2

REPORT INFORMATION
  Report Type: Spontaneous
  Country: US (occurrence: None)
  Receive Date: 20130423
  Receipt Date: 20130423
  Transmission Date: 20140414
  Serious: Yes (Death, Life-Threatening, Hospitalization, Disabling, Other)
  Sender: FDA-Public Use
  Company Number: None

PATIENT
  Sex: 0

DRUGS (1)
  1. AMIODARONE [Suspect]
     Indication: CARDIAC DISORDER
     Dates: start: 20090216, end: 20101013

REACTIONS (9)
  - Muscle atrophy [None]
  - Fall [None]
  - Clavicle fracture [None]
  - Limb operation [None]
  - Heart rate increased [None]
  - Anaemia [None]
  - Weight decreased [None]
  - Malaise [None]
  - Cardiac failure congestive [None]
